FAERS Safety Report 6386444-X (Version None)
Quarter: 2009Q4

REPORT INFORMATION
  Report Type: 
  Country: None (occurrence: None)
  Receive Date: 20091002
  Receipt Date: 20090506
  Transmission Date: 20100525
  Serious: No
  Sender: FDA-Public Use
  Company Number: US-ASTRAZENECA-2009UW11496

PATIENT
  Age: 77 Year
  Sex: Female
  Weight: 68.9 kg

DRUGS (8)
  1. ARIMIDEX [Suspect]
     Route: 048
     Dates: start: 20070201
  2. FOSAMAX [Concomitant]
  3. PRILOSEC [Concomitant]
  4. ANTIHISTAMINES [Concomitant]
  5. CALCIUM [Concomitant]
  6. VITAMIN A [Concomitant]
  7. KEFLEX [Concomitant]
  8. PREDNISONE TAB [Concomitant]

REACTIONS (1)
  - TINNITUS [None]
